FAERS Safety Report 9100905 (Version 2)
Quarter: 2014Q2

REPORT INFORMATION
  Report Type: Report from Study
  Country: CA (occurrence: CA)
  Receive Date: 20130215
  Receipt Date: 20140505
  Transmission Date: 20141212
  Serious: Yes (Hospitalization, Other)
  Sender: FDA-Public Use
  Company Number: PHHY2013CA014578

PATIENT
  Age: 79 Year
  Sex: Female

DRUGS (2)
  1. CLOZARIL [Suspect]
     Dates: start: 1994, end: 20130207
  2. OLANZAPINE [Concomitant]
     Dosage: 15 MG, HS

REACTIONS (5)
  - Pneumonia aspiration [Unknown]
  - Pancytopenia [Unknown]
  - Lymphopenia [Unknown]
  - White blood cell count decreased [Unknown]
  - Neutrophil count decreased [Unknown]
